FAERS Safety Report 17134923 (Version 1)
Quarter: 2019Q4

REPORT INFORMATION
  Report Type: Spontaneous
  Country: US (occurrence: US)
  Receive Date: 20191118
  Receipt Date: 20191118
  Transmission Date: 20200122
  Serious: No
  Sender: FDA-Public Use
  Company Number: None

PATIENT
  Age: 76 Year
  Sex: Female

DRUGS (1)
  1. SYNVISC-ONE [Suspect]
     Active Substance: HYLAN G-F 20
     Dosage: ?          OTHER DOSE:1 PFS;OTHER FREQUENCY:UNKNOWN;?
     Route: 014
     Dates: start: 201910, end: 201910

REACTIONS (1)
  - Drug ineffective [None]

NARRATIVE: CASE EVENT DATE: 20191118
